FAERS Safety Report 7027729-3 (Version None)
Quarter: 2010Q4

REPORT INFORMATION
  Report Type: 
  Country: None (occurrence: None)
  Receive Date: 20101004
  Receipt Date: 20100927
  Transmission Date: 20110411
  Serious: Yes (Hospitalization, Other)
  Sender: FDA-Public Use
  Company Number: US-AMGEN-KDL442107

PATIENT
  Age: 90 Year
  Sex: Male
  Weight: 61.3 kg

DRUGS (3)
  1. PROCRIT [Suspect]
     Indication: ANAEMIA
     Dates: start: 20100501, end: 20100801
  2. UNSPECIFIED ANTIHYPERTENSIVE AGENT [Concomitant]
  3. CHOLESTEROL- AND TRIGLYCERIDE REDUCERS [Concomitant]

REACTIONS (7)
  - CEREBROVASCULAR ACCIDENT [None]
  - DYSARTHRIA [None]
  - EATING DISORDER [None]
  - HYPOTENSION [None]
  - PNEUMONIA [None]
  - SPEECH DISORDER [None]
  - THROMBOSIS [None]
